FAERS Safety Report 20346149 (Version 1)
Quarter: 2022Q1

REPORT INFORMATION
  Report Type: Spontaneous
  Country: US (occurrence: US)
  Receive Date: 20220118
  Receipt Date: 20220118
  Transmission Date: 20220423
  Serious: No
  Sender: FDA-Public Use
  Company Number: US-BioDelivery Sciences International-2021BDSI0595

PATIENT
  Age: 73 Year
  Sex: Female

DRUGS (2)
  1. BUPRENORPHINE [Suspect]
     Active Substance: BUPRENORPHINE
     Indication: Pain
     Dosage: UNKNOWN
     Route: 065
  2. DICLOFENAC SODIUM [Concomitant]
     Active Substance: DICLOFENAC SODIUM
     Indication: Rheumatoid arthritis
     Dosage: UNKNOWN, UNKNOWN
     Route: 065

REACTIONS (4)
  - Vomiting [Unknown]
  - Chromaturia [Unknown]
  - Back pain [Unknown]
  - Chills [Recovering/Resolving]
